FAERS Safety Report 16020924 (Version 1)
Quarter: 2019Q1

REPORT INFORMATION
  Report Type: Spontaneous
  Country: US (occurrence: US)
  Receive Date: 20190301
  Receipt Date: 20190301
  Transmission Date: 20190418
  Serious: No
  Sender: FDA-Public Use
  Company Number: US-BAYER-2019-042766

PATIENT
  Age: 8 Year
  Sex: Male
  Weight: 48 kg

DRUGS (2)
  1. MIRALAX [Suspect]
     Active Substance: POLYETHYLENE GLYCOL 3350
     Dosage: 17 G,IN 4-8 OZ OF LIQUID
     Route: 048
     Dates: start: 2017
  2. CONSTIPATION RELIEF [BISACODYL] [Concomitant]
     Dosage: UNK

REACTIONS (2)
  - Wrong technique in product usage process [None]
  - Drug ineffective [Unknown]
